FAERS Safety Report 9266362 (Version 2)
Quarter: 2013Q2

REPORT INFORMATION
  Report Type: Spontaneous
  Country: NL (occurrence: NL)
  Receive Date: 20130502
  Receipt Date: 20130612
  Transmission Date: 20140414
  Serious: Yes (Hospitalization)
  Sender: FDA-Public Use
  Company Number: NL-ROCHE-1220636

PATIENT
  Sex: Female
  Weight: 130 kg

DRUGS (4)
  1. XOLAIR [Suspect]
     Indication: ASTHMA
     Route: 058
     Dates: start: 20130419, end: 20130419
  2. SYMBICORT [Concomitant]
  3. ALVESCO [Concomitant]
  4. SPIRIVA [Concomitant]

REACTIONS (2)
  - Hypersensitivity [Unknown]
  - Loss of consciousness [Unknown]
